FAERS Safety Report 20974080 (Version 2)
Quarter: 2022Q3

REPORT INFORMATION
  Report Type: Spontaneous
  Country: JP (occurrence: JP)
  Receive Date: 20220617
  Receipt Date: 20220729
  Transmission Date: 20221027
  Serious: Yes (Other)
  Sender: FDA-Public Use
  Company Number: JP-MYLANLABS-2022M1045524

PATIENT
  Age: 76 Year
  Sex: Male
  Weight: 58 kg

DRUGS (3)
  1. CARBOPLATIN [Suspect]
     Active Substance: CARBOPLATIN
     Indication: Pancreatic neuroendocrine tumour metastatic
     Route: 065
  2. ETOPOSIDE [Suspect]
     Active Substance: ETOPOSIDE
     Indication: Pancreatic neuroendocrine tumour metastatic
     Dosage: 120 MILLIGRAM/SQ. METER, ON DAY 1-3
     Route: 065
  3. STREPTOZOCIN [Suspect]
     Active Substance: STREPTOZOCIN
     Indication: Pancreatic neuroendocrine tumour metastatic
     Route: 065

REACTIONS (1)
  - Drug ineffective [Unknown]
